FAERS Safety Report 22757896 (Version 5)
Quarter: 2023Q4

REPORT INFORMATION
  Report Type: Report from Study
  Country: PL (occurrence: PL)
  Receive Date: 20230727
  Receipt Date: 20231117
  Transmission Date: 20240110
  Serious: Yes (Hospitalization, Other)
  Sender: FDA-Public Use
  Company Number: PL-TG THERAPEUTICS INC.-TGT002880

PATIENT

DRUGS (9)
  1. INVESTIGATIONAL PRODUCT [Suspect]
     Active Substance: INVESTIGATIONAL PRODUCT
     Indication: B-cell lymphoma
     Dosage: 100 MILLIGRAM, QD
     Route: 048
     Dates: start: 20210602, end: 20230703
  2. UBLITUXIMAB [Suspect]
     Active Substance: UBLITUXIMAB
     Indication: B-cell lymphoma
     Dosage: 900 MILLIGRAM, EVERY 3 MONTHS
     Route: 042
     Dates: start: 20210602
  3. UMBRALISIB [Suspect]
     Active Substance: UMBRALISIB
     Indication: B-cell lymphoma
     Dosage: 400 MILLIGRAM, QD
     Route: 048
     Dates: start: 20210602, end: 20230703
  4. METOPROLOL TARTRATE [Concomitant]
     Active Substance: METOPROLOL TARTRATE
     Indication: Hypertension
     Dosage: 47.5 UNK, QD
     Route: 048
     Dates: start: 2017
  5. AMLODIPINE BESYLATE\PERINDOPRIL ERBUMINE [Concomitant]
     Active Substance: AMLODIPINE BESYLATE\PERINDOPRIL ERBUMINE
     Indication: Hypertension
     Dosage: 4+5 MILLIGRAM, QD
     Route: 048
     Dates: start: 2017
  6. ACYCLOVIR [Concomitant]
     Active Substance: ACYCLOVIR
     Indication: Prophylaxis
     Dosage: 400 MILLIGRAM, BID
     Route: 048
     Dates: start: 20210602
  7. BISEPTOL [Concomitant]
     Active Substance: SULFAMETHOXAZOLE\TRIMETHOPRIM
     Indication: Prophylaxis
     Dosage: 960 MILLIGRAM, 3 TIMES PER WEEK
     Route: 048
     Dates: start: 20210602
  8. FEROPLEX [Concomitant]
     Indication: Anaemia
     Dosage: 40 MILLIGRAM, QD
     Route: 048
     Dates: start: 20221221
  9. CONTROLOC [Concomitant]
     Active Substance: PANTOPRAZOLE SODIUM
     Indication: Prophylaxis against gastrointestinal ulcer
     Dosage: 40 MILLIGRAM, QD
     Route: 048
     Dates: start: 20230204

REACTIONS (1)
  - Adenocarcinoma gastric [Not Recovered/Not Resolved]

NARRATIVE: CASE EVENT DATE: 20230720
